FAERS Safety Report 25060204 (Version 2)
Quarter: 2025Q4

REPORT INFORMATION
  Report Type: Spontaneous
  Country: EU (occurrence: EU)
  Receive Date: 20250310
  Receipt Date: 20251202
  Transmission Date: 20260117
  Serious: Yes (Life-Threatening, Hospitalization, Disabling, Other)
  Sender: NOVARTIS
  Company Number: None

PATIENT
  Age: 49 Year
  Sex: Female
  Weight: 67 kg

DRUGS (4)
  1. GILENYA [Suspect]
     Active Substance: FINGOLIMOD HYDROCHLORIDE
     Indication: Multiple sclerosis
     Dosage: 0.5 MG, QD
     Route: 048
     Dates: start: 20180110, end: 202501
  2. MIRABEGRON [Concomitant]
     Active Substance: MIRABEGRON
     Indication: Urinary incontinence
     Dosage: 1 DOSAGE FORM, QD
     Route: 048
  3. PHENERGAN [Concomitant]
     Active Substance: PROMETHAZINE HYDROCHLORIDE
     Indication: Sleep disorder
     Dosage: 1 DOSAGE FORM, QD
     Route: 048
  4. LIVIAL [Concomitant]
     Active Substance: TIBOLONE
     Indication: Hormone therapy
     Dosage: 1 DOSAGE FORM, QD
     Route: 048

REACTIONS (1)
  - B-cell lymphoma [Recovered/Resolved with Sequelae]
